FAERS Safety Report 12724519 (Version 6)
Quarter: 2017Q1

REPORT INFORMATION
  Report Type: Spontaneous
  Country: US (occurrence: US)
  Receive Date: 20160908
  Receipt Date: 20170321
  Transmission Date: 20170428
  Serious: Yes (Other)
  Sender: FDA-Public Use
  Company Number: PHEH2016US022710

PATIENT
  Age: 29 Year
  Sex: Female
  Weight: 68 kg

DRUGS (2)
  1. ONDANSETRON HYDROCHLORIDE. [Suspect]
     Active Substance: ONDANSETRON HYDROCHLORIDE
     Indication: PRODUCT USED FOR UNKNOWN INDICATION
     Dosage: UNK
     Route: 048
  2. ONDANSETRON DR REDDY [Suspect]
     Active Substance: ONDANSETRON
     Indication: VOMITING IN PREGNANCY
     Dosage: 8 MG, PRN
     Route: 048
     Dates: start: 20101030, end: 201012

REACTIONS (12)
  - Product use issue [Unknown]
  - Premature delivery [Unknown]
  - Emotional distress [Unknown]
  - Ventricular extrasystoles [Unknown]
  - Pulmonary valve incompetence [Unknown]
  - Oligohydramnios [Unknown]
  - Pharyngitis [Unknown]
  - Eclampsia [Unknown]
  - Injury [Unknown]
  - Depression [Unknown]
  - Cardiac murmur [Unknown]
  - Maternal exposure during pregnancy [Unknown]

NARRATIVE: CASE EVENT DATE: 20110426
